FAERS Safety Report 24612823 (Version 5)
Quarter: 2025Q4

REPORT INFORMATION
  Report Type: Spontaneous
  Country: CA (occurrence: CA)
  Receive Date: 20241113
  Receipt Date: 20251028
  Transmission Date: 20260118
  Serious: Yes (Hospitalization, Other)
  Sender: Haleon PLC
  Company Number: CA-002147023-NVSC2023CA023717

PATIENT
  Age: 75 Year
  Sex: Female
  Weight: 70 kg

DRUGS (224)
  1. ADVIL [Suspect]
     Active Substance: IBUPROFEN
     Indication: Arthralgia
     Dosage: ROUTE: UNKNOWN
  2. ADVIL [Suspect]
     Active Substance: IBUPROFEN
     Dosage: ROUTE: UNKNOWN
  3. ATORVASTATIN [Suspect]
     Active Substance: ATORVASTATIN
     Indication: Dyslipidaemia
  4. ATORVASTATIN [Suspect]
     Active Substance: ATORVASTATIN
  5. BRINZOLAMIDE\TIMOLOL MALEATE [Suspect]
     Active Substance: BRINZOLAMIDE\TIMOLOL MALEATE
     Indication: Glaucoma
     Dosage: UNK, ROUTE: OPHTHALMIC
  6. BRINZOLAMIDE\TIMOLOL MALEATE [Suspect]
     Active Substance: BRINZOLAMIDE\TIMOLOL MALEATE
  7. BRINZOLAMIDE\TIMOLOL MALEATE [Suspect]
     Active Substance: BRINZOLAMIDE\TIMOLOL MALEATE
     Dosage: UNK, ROUTE: OPHTHALMIC
  8. ESTRADIOL [Suspect]
     Active Substance: ESTRADIOL
     Indication: Menopausal symptoms
     Dosage: UNK, ROUTE: UNKNOWN
  9. ESTRADIOL [Suspect]
     Active Substance: ESTRADIOL
     Dosage: UNK, ROUTE: UNKNOWN
  10. ESTRADIOL [Suspect]
     Active Substance: ESTRADIOL
     Dosage: UNK, ROUTE: UNKNOWN
  11. BRINZOLAMIDE\TIMOLOL [Suspect]
     Active Substance: BRINZOLAMIDE\TIMOLOL
     Indication: Glaucoma
     Dosage: UNK, ROUTE: OPHTHALMIC
  12. BRINZOLAMIDE\TIMOLOL [Suspect]
     Active Substance: BRINZOLAMIDE\TIMOLOL
     Dosage: UNK, ROUTE: UNKNOWN
  13. BRINZOLAMIDE\TIMOLOL [Suspect]
     Active Substance: BRINZOLAMIDE\TIMOLOL
     Dosage: UNK, ROUTE: OPHTHALMIC
  14. BRINZOLAMIDE\TIMOLOL [Suspect]
     Active Substance: BRINZOLAMIDE\TIMOLOL
     Dosage: UNK, ROUTE: UNKNOWN
  15. BRINZOLAMIDE\TIMOLOL [Suspect]
     Active Substance: BRINZOLAMIDE\TIMOLOL
     Dosage: UNK, ROUTE: UNKNOWN
  16. CHOLECALCIFEROL [Suspect]
     Active Substance: CHOLECALCIFEROL
     Indication: Product used for unknown indication
     Dosage: ROUTE: UNK
  17. CLONAZEPAM [Suspect]
     Active Substance: CLONAZEPAM
     Indication: Product used for unknown indication
     Dosage: UNK, ROUTE: UNKNOWN
  18. CLONAZEPAM [Suspect]
     Active Substance: CLONAZEPAM
  19. CLONAZEPAM [Suspect]
     Active Substance: CLONAZEPAM
     Dosage: UNK, ROUTE: UNKNOWN
  20. CLONAZEPAM [Suspect]
     Active Substance: CLONAZEPAM
     Dosage: UNK, ROUTE: UNKNOWN
  21. DICLOFENAC [Concomitant]
     Active Substance: DICLOFENAC
     Indication: Product used for unknown indication
  22. IPRATROPIUM [Suspect]
     Active Substance: IPRATROPIUM
     Indication: Arthralgia
     Dosage: UNK, ROUTE: UNKNOWN
  23. IPRATROPIUM [Suspect]
     Active Substance: IPRATROPIUM
     Indication: Rhinitis
     Dosage: UNK
     Route: 045
  24. IPRATROPIUM [Suspect]
     Active Substance: IPRATROPIUM
     Dosage: UNK, ROUTE: UNKNOWN
  25. IPRATROPIUM [Suspect]
     Active Substance: IPRATROPIUM
     Dosage: UNK
     Route: 045
  26. IPRATROPIUM [Suspect]
     Active Substance: IPRATROPIUM
     Dosage: UNK, ROUTE: UNKNOWN
  27. IPRATROPIUM [Suspect]
     Active Substance: IPRATROPIUM
     Dosage: UNK
     Route: 045
  28. IPRATROPIUM [Suspect]
     Active Substance: IPRATROPIUM
     Dosage: UNK
     Route: 045
  29. IPRATROPIUM [Suspect]
     Active Substance: IPRATROPIUM
     Dosage: UNK, ROUTE: UNKNOWN
  30. IPRATROPIUM [Suspect]
     Active Substance: IPRATROPIUM
     Dosage: UNK, ROUTE: UNKNOWN
     Route: 045
  31. IPRATROPIUM [Suspect]
     Active Substance: IPRATROPIUM
     Dosage: UNK
     Route: 045
  32. IPRATROPIUM [Suspect]
     Active Substance: IPRATROPIUM
     Dosage: UNK
     Route: 045
  33. IPRATROPIUM [Suspect]
     Active Substance: IPRATROPIUM
     Dosage: UNK
     Route: 045
  34. IPRATROPIUM [Suspect]
     Active Substance: IPRATROPIUM
     Dosage: UNK
     Route: 045
  35. IPRATROPIUM [Suspect]
     Active Substance: IPRATROPIUM
     Dosage: UNK
     Route: 045
  36. IPRATROPIUM [Suspect]
     Active Substance: IPRATROPIUM
     Dosage: UNK
     Route: 045
  37. IPRATROPIUM BROMIDE [Suspect]
     Active Substance: IPRATROPIUM BROMIDE
     Indication: Rhinitis
     Dosage: UNK, ROUTE: UNKNOWN
  38. IPRATROPIUM BROMIDE [Suspect]
     Active Substance: IPRATROPIUM BROMIDE
     Indication: Product used for unknown indication
     Dosage: UNK, INTRA-NASAL
  39. TELMISARTAN [Suspect]
     Active Substance: TELMISARTAN
     Indication: Hypertension
     Dosage: UNK, ROUTE: UNKNOWN
  40. TELMISARTAN [Suspect]
     Active Substance: TELMISARTAN
     Indication: Glaucoma
     Dosage: UNK, ROUTE: UNKNOWN
  41. TELMISARTAN [Suspect]
     Active Substance: TELMISARTAN
     Dosage: UNK, ROUTE: UNKNOWN
  42. TELMISARTAN [Suspect]
     Active Substance: TELMISARTAN
     Dosage: UNK, ROUTE: UNKNOWN
  43. TELMISARTAN [Suspect]
     Active Substance: TELMISARTAN
     Dosage: UNK, ROUTE: UNKNOWN
  44. TELMISARTAN [Suspect]
     Active Substance: TELMISARTAN
     Dosage: UNK, ROUTE: OPHTHALMIC
  45. TELMISARTAN [Suspect]
     Active Substance: TELMISARTAN
     Dosage: UNK, ROUTE: UNKNOWN
  46. TELMISARTAN [Suspect]
     Active Substance: TELMISARTAN
     Dosage: UNK, ROUTE: UNKNOWN
  47. ATORVASTATIN [Suspect]
     Active Substance: ATORVASTATIN
     Indication: Dyslipidaemia
     Dosage: UNK, ROA: UNKNOWN
  48. ATORVASTATIN [Suspect]
     Active Substance: ATORVASTATIN
  49. ATORVASTATIN [Suspect]
     Active Substance: ATORVASTATIN
  50. AMOXICILLIN [Suspect]
     Active Substance: AMOXICILLIN
     Indication: Sinusitis
     Dosage: UNK, ROUTE: UNKNOWN
  51. AMOXICILLIN [Suspect]
     Active Substance: AMOXICILLIN
     Dosage: UNK, ROUTE: UNKNOWN
  52. NICOTINAMIDE [Suspect]
     Active Substance: NIACINAMIDE
     Indication: Product used for unknown indication
     Dosage: UNK, ROUTE: UNKNOWN
  53. PSEUDOEPHEDRINE [Suspect]
     Active Substance: PSEUDOEPHEDRINE
     Indication: Product used for unknown indication
     Dosage: ROA: UNKNOWN
  54. RIBOFLAVIN [Suspect]
     Active Substance: RIBOFLAVIN
     Indication: Product used for unknown indication
     Dosage: UNK, ROUTE: UNKNOWN
  55. VITAMIN A [Suspect]
     Active Substance: VITAMIN A
     Indication: Product used for unknown indication
     Dosage: ROA: UNK
  56. ERGOCALCIFEROL [Suspect]
     Active Substance: ERGOCALCIFEROL
     Indication: Product used for unknown indication
     Dosage: UNK, ROUTE: UNKNOWN
  57. PSEUDOEPHEDRINE HYDROCHLORIDE [Suspect]
     Active Substance: PSEUDOEPHEDRINE HYDROCHLORIDE
     Indication: Product used for unknown indication
     Dosage: ROA: UNK
  58. PSEUDOEPHEDRINE HYDROCHLORIDE [Suspect]
     Active Substance: PSEUDOEPHEDRINE HYDROCHLORIDE
     Dosage: ROA: UNKNOWN
  59. PSEUDOEPHEDRINE HYDROCHLORIDE [Suspect]
     Active Substance: PSEUDOEPHEDRINE HYDROCHLORIDE
     Dosage: ROA: UNKNOWN
  60. VITAMIN C [Suspect]
     Active Substance: ASCORBIC ACID
     Indication: Product used for unknown indication
     Dosage: UNK, ROUTE: UNKNOWN
  61. VITAMIN D3 [Suspect]
     Active Substance: CHOLECALCIFEROL
     Indication: Product used for unknown indication
     Dosage: UNK, ROUTE: UNKNOWN
  62. VITAMIN D3 [Suspect]
     Active Substance: CHOLECALCIFEROL
     Dosage: UNK, ROUTE: UNKNOWN
  63. VITAMIN D3 [Suspect]
     Active Substance: CHOLECALCIFEROL
     Dosage: UNK, ROUTE: UNKNOWN
  64. VITAMIN D3 [Suspect]
     Active Substance: CHOLECALCIFEROL
     Dosage: UNK, ROUTE: UNKNOWN
  65. VITAMIN D3 [Suspect]
     Active Substance: CHOLECALCIFEROL
     Dosage: UNK, ROUTE: UNKNOWN
  66. VITAMIN D3 [Suspect]
     Active Substance: CHOLECALCIFEROL
     Dosage: UNK, ROUTE: UNKNOWN
  67. VITAMIN D3 [Suspect]
     Active Substance: CHOLECALCIFEROL
     Dosage: UNK, ROUTE: UNKNOWN
  68. VITAMIN D3 [Suspect]
     Active Substance: CHOLECALCIFEROL
     Dosage: UNK, ROUTE: UNKNOWN
  69. VITAMIN D3 [Suspect]
     Active Substance: CHOLECALCIFEROL
     Dosage: UNK, ROUTE: UNKNOWN
  70. Paracetamol, pseudoephedrine hcl [Concomitant]
     Indication: Product used for unknown indication
  71. BRINZOLAMIDE\TIMOLOL [Suspect]
     Active Substance: BRINZOLAMIDE\TIMOLOL
     Indication: Glaucoma
     Dosage: ROA: OPHTHALMIC
  72. BRINZOLAMIDE\TIMOLOL [Suspect]
     Active Substance: BRINZOLAMIDE\TIMOLOL
     Dosage: OPHTHALMIC
  73. ESTRADIOL [Suspect]
     Active Substance: ESTRADIOL
     Indication: Product used for unknown indication
     Dosage: UNK, ROUTE: UNKNOWN
  74. ESTRADIOL [Suspect]
     Active Substance: ESTRADIOL
     Dosage: UNK
     Route: 062
  75. AMOXICILLIN [Concomitant]
     Active Substance: AMOXICILLIN
     Indication: Product used for unknown indication
     Dosage: UNK, ROUTE: UNKNOWN
  76. AMOXICILLIN [Concomitant]
     Active Substance: AMOXICILLIN
     Indication: Sinusitis
     Dosage: UNK, ROUTE: UNKNOWN
  77. ATORVASTATIN CALCIUM [Suspect]
     Active Substance: ATORVASTATIN CALCIUM
     Indication: Dyslipidaemia
     Dosage: UNK, ROUTE: UNKNOWN
  78. ATORVASTATIN CALCIUM [Suspect]
     Active Substance: ATORVASTATIN CALCIUM
     Indication: Product used for unknown indication
     Dosage: UNK, ROUTE: UNKNOWN
  79. ATORVASTATIN CALCIUM [Suspect]
     Active Substance: ATORVASTATIN CALCIUM
     Dosage: UNK (FILM COATED TABLET), ROUTE: UNKNOWN
  80. ATORVASTATIN CALCIUM [Suspect]
     Active Substance: ATORVASTATIN CALCIUM
     Dosage: UNK, ROUTE: UNKNOWN
  81. ATORVASTATIN CALCIUM [Suspect]
     Active Substance: ATORVASTATIN CALCIUM
     Dosage: UNK, ROUTE: UNKNOWN
  82. IPRATROPIUM [Suspect]
     Active Substance: IPRATROPIUM
     Indication: Rhinitis
     Route: 045
  83. IPRATROPIUM [Suspect]
     Active Substance: IPRATROPIUM
     Dosage: UNKNOWN ROUTE
  84. IPRATROPIUM [Suspect]
     Active Substance: IPRATROPIUM
     Route: 045
  85. IPRATROPIUM [Suspect]
     Active Substance: IPRATROPIUM
     Route: 045
  86. IPRATROPIUM [Suspect]
     Active Substance: IPRATROPIUM
     Dosage: UNKNOWN ROUTE
  87. IPRATROPIUM [Suspect]
     Active Substance: IPRATROPIUM
     Route: 045
  88. IPRATROPIUM [Suspect]
     Active Substance: IPRATROPIUM
     Route: 045
  89. IPRATROPIUM [Suspect]
     Active Substance: IPRATROPIUM
     Route: 045
  90. ZOPICLONE [Suspect]
     Active Substance: ZOPICLONE
     Indication: Insomnia
     Dosage: 100 MG, ROUTE: UNKNOWN
  91. ZOPICLONE [Suspect]
     Active Substance: ZOPICLONE
     Indication: Arthralgia
     Dosage: UNK, ROUTE: UNKNOWN
  92. ZOPICLONE [Suspect]
     Active Substance: ZOPICLONE
     Indication: Sinusitis
     Dosage: UNK, ROUTE: UNKNOWN
  93. ZOPICLONE [Suspect]
     Active Substance: ZOPICLONE
     Indication: Dyslipidaemia
     Dosage: UNK, ROUTE: UNKNOWN
  94. ZOPICLONE [Suspect]
     Active Substance: ZOPICLONE
     Dosage: UNK, ROUTE: UNKNOWN
  95. ZOPICLONE [Suspect]
     Active Substance: ZOPICLONE
     Dosage: UNK, ROUTE: UNKNOWN
  96. ZOPICLONE [Suspect]
     Active Substance: ZOPICLONE
     Dosage: 100 MG, ROUTE: UNKNOWN
  97. ZOPICLONE [Suspect]
     Active Substance: ZOPICLONE
     Dosage: UNK, ROUTE: UNKNOWN
  98. ZOPICLONE [Suspect]
     Active Substance: ZOPICLONE
     Dosage: UNK, ROUTE: UNKNOWN
  99. ZOPICLONE [Suspect]
     Active Substance: ZOPICLONE
     Dosage: UNK, ROUTE: UNKNOWN
  100. ZOPICLONE [Suspect]
     Active Substance: ZOPICLONE
     Dosage: UNK, ROUTE: UNKNOWN
  101. PYRIDOXINE HYDROCHLORIDE [Suspect]
     Active Substance: PYRIDOXINE HYDROCHLORIDE
     Indication: Product used for unknown indication
     Dosage: UNK, ROUTE: UNKNOWN
  102. PYRIDOXINE HYDROCHLORIDE [Suspect]
     Active Substance: PYRIDOXINE HYDROCHLORIDE
     Dosage: UNK, ROUTE: UNKNOWN
  103. PYRIDOXINE HYDROCHLORIDE [Suspect]
     Active Substance: PYRIDOXINE HYDROCHLORIDE
     Dosage: UNK, ROUTE: UNKNOWN
  104. PYRIDOXINE HYDROCHLORIDE [Suspect]
     Active Substance: PYRIDOXINE HYDROCHLORIDE
     Dosage: UNK, ROUTE: UNKNOWN
  105. PYRIDOXINE HYDROCHLORIDE [Suspect]
     Active Substance: PYRIDOXINE HYDROCHLORIDE
     Dosage: UNK, ROUTE: UNKNOWN
  106. ESTRADIOL [Suspect]
     Active Substance: ESTRADIOL
     Indication: Menopausal symptoms
  107. ESTRADIOL [Suspect]
     Active Substance: ESTRADIOL
     Indication: Arthralgia
  108. ESTRADIOL [Suspect]
     Active Substance: ESTRADIOL
  109. ATORVASTATIN CALCIUM [Concomitant]
     Active Substance: ATORVASTATIN CALCIUM
     Indication: Dyslipidaemia
     Dosage: UNK, ROUTE: UNKNOWN
  110. ATORVASTATIN CALCIUM [Concomitant]
     Active Substance: ATORVASTATIN CALCIUM
     Indication: Product used for unknown indication
     Dosage: UNK, ROUTE: UNKNOWN
  111. BRINZOLAMIDE [Suspect]
     Active Substance: BRINZOLAMIDE
     Indication: Glaucoma
     Dosage: UNK, ROUTE: UNKNOWN
  112. BRINZOLAMIDE [Suspect]
     Active Substance: BRINZOLAMIDE
     Dosage: UNK, ROUTE: UNKNOWN
  113. BRINZOLAMIDE [Suspect]
     Active Substance: BRINZOLAMIDE
     Dosage: UNK, ROUTE: UNKNOWN
  114. ADVIL [Suspect]
     Active Substance: IBUPROFEN
     Indication: Arthralgia
     Dosage: UNKNOWN ROUTE
  115. ADVIL [Suspect]
     Active Substance: IBUPROFEN
     Dosage: ROA: UNK
  116. ADVIL [Suspect]
     Active Substance: IBUPROFEN
     Dosage: ROA: UNKNOWN
  117. CHOLECALCIFEROL [Concomitant]
     Active Substance: CHOLECALCIFEROL
     Indication: Product used for unknown indication
     Dosage: UNK, ROUTE: UNKNOWN
  118. NAPROXEN SODIUM [Concomitant]
     Active Substance: NAPROXEN SODIUM
     Indication: Arthralgia
     Dosage: UNK, ROUTE: UNKNOWN
  119. NAPROXEN SODIUM [Concomitant]
     Active Substance: NAPROXEN SODIUM
     Indication: Product used for unknown indication
     Dosage: UNK, ROUTE: UNKNOWN
  120. AZOPT [Suspect]
     Active Substance: BRINZOLAMIDE
     Indication: Glaucoma
     Dosage: UNK (SUSPENSION), ROUTE: OCULAR USE
  121. AZOPT [Suspect]
     Active Substance: BRINZOLAMIDE
     Dosage: UNK (SUSPENSION), ROA: OPHTHALMIC
  122. CLONAZEPAM [Suspect]
     Active Substance: CLONAZEPAM
     Indication: Product used for unknown indication
     Dosage: ROA: UNKNOWN
  123. CLONAZEPAM [Suspect]
     Active Substance: CLONAZEPAM
     Dosage: UNKNOWN ROUTE
  124. CLONAZEPAM [Suspect]
     Active Substance: CLONAZEPAM
     Dosage: UNKNOWN ROUTE
  125. PREGABALIN [Suspect]
     Active Substance: PREGABALIN
     Indication: Arthralgia
     Dosage: UNK, ROUTE: UNKNOWN
  126. PREGABALIN [Suspect]
     Active Substance: PREGABALIN
     Dosage: UNK, ROUTE: UNKNOWN
  127. PREGABALIN [Suspect]
     Active Substance: PREGABALIN
     Dosage: UNK, ROUTE: UNKNOWN
  128. PREGABALIN [Suspect]
     Active Substance: PREGABALIN
     Dosage: UNK, ROUTE: UNKNOWN
  129. PREGABALIN [Suspect]
     Active Substance: PREGABALIN
     Dosage: UNK, ROUTE: UNKNOWN
  130. PREGABALIN [Suspect]
     Active Substance: PREGABALIN
     Dosage: UNK, ROUTE: UNKNOWN
  131. PREGABALIN [Suspect]
     Active Substance: PREGABALIN
     Dosage: 50 MG, ROUTE: UNKNOWN
  132. DICLOFENAC SODIUM [Suspect]
     Active Substance: DICLOFENAC SODIUM
     Indication: Arthralgia
     Dosage: UNK, ROUTE: UNKNOWN
  133. DICLOFENAC SODIUM [Suspect]
     Active Substance: DICLOFENAC SODIUM
     Dosage: UNK, ROUTE: UNKNOWN
  134. DICLOFENAC SODIUM [Suspect]
     Active Substance: DICLOFENAC SODIUM
     Dosage: UNK, ROUTE: OPHTHALMIC
  135. DICLOFENAC SODIUM [Suspect]
     Active Substance: DICLOFENAC SODIUM
     Dosage: UNK, ROUTE: UNKNOWN
  136. LATANOPROST [Suspect]
     Active Substance: LATANOPROST
     Indication: Glaucoma
     Dosage: UNK, ROUTE: OPHTHALMIC
  137. LATANOPROST [Suspect]
     Active Substance: LATANOPROST
     Dosage: ROA: OPHTHALMIC
  138. LATANOPROST [Suspect]
     Active Substance: LATANOPROST
     Dosage: UNK, ROUTE: OPHTHALMIC
  139. LATANOPROST [Suspect]
     Active Substance: LATANOPROST
     Dosage: UNK (EYE DROPS)
  140. LATANOPROST [Suspect]
     Active Substance: LATANOPROST
     Dosage: UNK, ROUTE: OPHTHALMIC
  141. LATANOPROST [Suspect]
     Active Substance: LATANOPROST
     Dosage: ROA: OPHTHALMIC
  142. LATANOPROST [Suspect]
     Active Substance: LATANOPROST
     Dosage: UNK, ROUTE: OPHTHALMIC
  143. LATANOPROST [Suspect]
     Active Substance: LATANOPROST
     Dosage: ROA: OPHTHALMIC
  144. LATANOPROST [Suspect]
     Active Substance: LATANOPROST
     Dosage: UNK, ROUTE: OPHTHALMIC
  145. LATANOPROST [Suspect]
     Active Substance: LATANOPROST
     Dosage: ROA: OPHTHALMIC
  146. LATANOPROST [Suspect]
     Active Substance: LATANOPROST
     Dosage: UNK, ROUTE: OPHTHALMIC
  147. LATANOPROST [Suspect]
     Active Substance: LATANOPROST
     Dosage: UNK, ROUTE: OPHTHALMIC
  148. LATANOPROST [Suspect]
     Active Substance: LATANOPROST
     Dosage: UNK (EYE DROPS), ROUTE: UNKNOWN
  149. LATANOPROST [Suspect]
     Active Substance: LATANOPROST
     Dosage: UNK, ROUTE: OPHTHALMIC
  150. LATANOPROST [Suspect]
     Active Substance: LATANOPROST
     Dosage: UNK, ROUTE: OPHTHALMIC
  151. LATANOPROST [Suspect]
     Active Substance: LATANOPROST
     Dosage: UNK, ROUTE: OPHTHALMIC
  152. LATANOPROST [Suspect]
     Active Substance: LATANOPROST
     Dosage: UNK, ROUTE: OPHTHALMIC
  153. LATANOPROST [Suspect]
     Active Substance: LATANOPROST
     Dosage: UNK, ROUTE: OPHTHALMIC
  154. LATANOPROST [Suspect]
     Active Substance: LATANOPROST
     Dosage: UNK, ROUTE: OPHTHALMIC
  155. LATANOPROST [Suspect]
     Active Substance: LATANOPROST
     Dosage: UNK, ROUTE: OPHTHALMIC
  156. LATANOPROST [Suspect]
     Active Substance: LATANOPROST
     Dosage: UNK, ROUTE: OPHTHALMIC
  157. ACETAMINOPHEN [Concomitant]
     Active Substance: ACETAMINOPHEN
     Indication: Product used for unknown indication
     Dosage: UNK, ROUTE: UNKNOWN
  158. DICLOFENAC [Suspect]
     Active Substance: DICLOFENAC
     Indication: Product used for unknown indication
     Dosage: ROA: OPTHALMIC
  159. DICLOFENAC [Suspect]
     Active Substance: DICLOFENAC
     Indication: Arthralgia
     Dosage: ROA: UNKNOWN
  160. DICLOFENAC [Concomitant]
     Active Substance: DICLOFENAC
     Indication: Product used for unknown indication
     Dosage: UNK, ROUTE: UNKNOWN
  161. TUMS ULTRA [Suspect]
     Active Substance: CALCIUM CARBONATE
     Indication: Product used for unknown indication
     Dosage: UNK, ROUTE: UNKNOWN
  162. TUMS ULTRA [Suspect]
     Active Substance: CALCIUM CARBONATE
     Dosage: UNK, ROUTE: UNKNOWN
  163. TUMS ULTRA [Suspect]
     Active Substance: CALCIUM CARBONATE
     Dosage: UNK, ROUTE: UNKNOWN
  164. TELMISARTAN [Suspect]
     Active Substance: TELMISARTAN
     Indication: Hypertension
     Dosage: ROA: UNKNOWN
  165. TELMISARTAN [Suspect]
     Active Substance: TELMISARTAN
     Dosage: ROA: UNKNOWN
  166. TELMISARTAN [Suspect]
     Active Substance: TELMISARTAN
     Dosage: ROA: UNKNOWN
  167. TELMISARTAN [Suspect]
     Active Substance: TELMISARTAN
     Dosage: ROA: UNKNOWN
  168. VITAMIN B6 [Suspect]
     Active Substance: PYRIDOXINE HYDROCHLORIDE
     Indication: Product used for unknown indication
     Dosage: UNK, ROUTE: UNKNOWN
  169. PYRIDOXINE [Concomitant]
     Active Substance: PYRIDOXINE
     Indication: Product used for unknown indication
     Dosage: UNK, ROUTE: UNKNOWN
  170. PYRIDOXINE [Concomitant]
     Active Substance: PYRIDOXINE
     Dosage: UNK, ROUTE: UNKNOWN
  171. PYRIDOXINE [Concomitant]
     Active Substance: PYRIDOXINE
     Dosage: UNK, ROUTE: UNKNOWN
  172. PYRIDOXINE [Concomitant]
     Active Substance: PYRIDOXINE
     Dosage: UNK, ROUTE: UNKNOWN
  173. PYRIDOXINE [Concomitant]
     Active Substance: PYRIDOXINE
     Dosage: UNK, ROUTE: UNKNOWN
  174. PYRIDOXINE HYDROCHLORIDE [Concomitant]
     Active Substance: PYRIDOXINE HYDROCHLORIDE
     Indication: Product used for unknown indication
     Dosage: ROA: UNKNOWN
  175. GABAPENTIN [Suspect]
     Active Substance: GABAPENTIN
     Indication: Arthralgia
     Dosage: UNK, ROUTE: UNKNOWN
  176. GABAPENTIN [Suspect]
     Active Substance: GABAPENTIN
     Dosage: ROA: UNKNOWN
  177. GABAPENTIN [Suspect]
     Active Substance: GABAPENTIN
     Dosage: 100 MG, ROUTE: UNKNOWN
  178. GABAPENTIN [Suspect]
     Active Substance: GABAPENTIN
     Dosage: UNK, ROUTE: UNKNOWN
  179. NAPROXEN [Suspect]
     Active Substance: NAPROXEN
     Indication: Arthralgia
     Dosage: UNK, ROUTE: UNKNOWN
  180. ACETAMINOPHEN [Suspect]
     Active Substance: ACETAMINOPHEN
     Indication: Product used for unknown indication
     Dosage: UNK, ROUTE: UNKNOWN
  181. ACETAMINOPHEN [Suspect]
     Active Substance: ACETAMINOPHEN
     Indication: Rhinitis
     Dosage: UNK, ROUTE: UNKNOWN
  182. ACETAMINOPHEN [Suspect]
     Active Substance: ACETAMINOPHEN
     Dosage: UNK, ROUTE: UNKNOWN
  183. ACETAMINOPHEN [Suspect]
     Active Substance: ACETAMINOPHEN
     Dosage: UNK, ROUTE: UNKNOWN
  184. ACETAMINOPHEN [Suspect]
     Active Substance: ACETAMINOPHEN
     Dosage: UNK, ROUTE: UNKNOWN
  185. ACETAMINOPHEN [Suspect]
     Active Substance: ACETAMINOPHEN
     Dosage: UNK, ROUTE: UNKNOWN
  186. ACETAMINOPHEN [Suspect]
     Active Substance: ACETAMINOPHEN
     Dosage: UNK, ROUTE: UNKNOWN
  187. ACETAMINOPHEN [Suspect]
     Active Substance: ACETAMINOPHEN
     Dosage: UNK, ROUTE: UNKNOWN
  188. AMOXICILLIN TRIHYDRATE [Suspect]
     Active Substance: AMOXICILLIN
     Indication: Sinusitis
     Dosage: UNK, ROUTE: UNKNOWN
  189. BRINZOLAMIDE\TIMOLOL MALEATE [Suspect]
     Active Substance: BRINZOLAMIDE\TIMOLOL MALEATE
     Indication: Glaucoma
     Dosage: OPHTHALMIC ROUTE
  190. BRINZOLAMIDE\TIMOLOL MALEATE [Suspect]
     Active Substance: BRINZOLAMIDE\TIMOLOL MALEATE
     Dosage: OPHTHALMIC ROUTE
  191. BRINZOLAMIDE\TIMOLOL MALEATE [Suspect]
     Active Substance: BRINZOLAMIDE\TIMOLOL MALEATE
     Dosage: ROA: UNKNOWN
  192. BRINZOLAMIDE\TIMOLOL MALEATE [Suspect]
     Active Substance: BRINZOLAMIDE\TIMOLOL MALEATE
     Dosage: OPHTHALMIC ROUTE
  193. BRINZOLAMIDE\TIMOLOL MALEATE [Suspect]
     Active Substance: BRINZOLAMIDE\TIMOLOL MALEATE
     Dosage: ROA: UNKNOWN
  194. CHOLECALCIFEROL [Suspect]
     Active Substance: CHOLECALCIFEROL
     Indication: Product used for unknown indication
     Dosage: ROA: UNK
  195. CHOLECALCIFEROL [Suspect]
     Active Substance: CHOLECALCIFEROL
     Dosage: ROA: UNK
  196. DEXPANTHENOL [Suspect]
     Active Substance: DEXPANTHENOL
     Indication: Product used for unknown indication
     Dosage: ROA: UNK
  197. IPRATROPIUM BROMIDE [Concomitant]
     Active Substance: IPRATROPIUM BROMIDE
     Indication: Rhinitis
     Dosage: ROA: NASAL USE
  198. THIAMINE HYDROCHLORIDE [Suspect]
     Active Substance: THIAMINE HYDROCHLORIDE
     Indication: Product used for unknown indication
     Dosage: UNK, ROUTE: UNKNOWN
  199. ESTRADIOL [Suspect]
     Active Substance: ESTRADIOL
     Indication: Arthralgia
     Dosage: ROA AND DF: UNKNOWN
  200. ESTRADIOL [Suspect]
     Active Substance: ESTRADIOL
     Indication: Menopausal symptoms
     Dosage: ROA AND DF: UNKNOWN
  201. ESTRADIOL [Suspect]
     Active Substance: ESTRADIOL
     Dosage: ROA AND DF: UNKNOWN
  202. ESTRADIOL [Suspect]
     Active Substance: ESTRADIOL
     Dosage: ROA AND DF: UNKNOWN
  203. ESTRADIOL [Suspect]
     Active Substance: ESTRADIOL
     Dosage: ROA AND DF: UNKNOWN
  204. FOLIC ACID [Suspect]
     Active Substance: FOLIC ACID
     Indication: Product used for unknown indication
     Dosage: ROA: UNK
  205. ACETAMINOPHEN\PSEUDOEPHEDRINE [Concomitant]
     Active Substance: ACETAMINOPHEN\PSEUDOEPHEDRINE
     Indication: Product used for unknown indication
  206. ATORVASTATIN CALCIUM [Suspect]
     Active Substance: ATORVASTATIN CALCIUM
     Indication: Dyslipidaemia
  207. ATORVASTATIN CALCIUM [Suspect]
     Active Substance: ATORVASTATIN CALCIUM
  208. ATORVASTATIN CALCIUM [Suspect]
     Active Substance: ATORVASTATIN CALCIUM
  209. ATORVASTATIN CALCIUM [Suspect]
     Active Substance: ATORVASTATIN CALCIUM
  210. DIETARY SUPPLEMENT [Suspect]
     Active Substance: DIETARY SUPPLEMENT
     Indication: Product used for unknown indication
     Dosage: UNK, ROUTE: UNKNOWN
  211. DIETARY SUPPLEMENT [Suspect]
     Active Substance: DIETARY SUPPLEMENT
     Dosage: UNK, ROUTE: UNKNOWN
  212. DIETARY SUPPLEMENT [Suspect]
     Active Substance: DIETARY SUPPLEMENT
     Dosage: UNK, ROUTE: UNKNOWN
  213. DIETARY SUPPLEMENT [Suspect]
     Active Substance: DIETARY SUPPLEMENT
     Dosage: UNK, ROUTE: UNKNOWN
  214. DIETARY SUPPLEMENT [Suspect]
     Active Substance: DIETARY SUPPLEMENT
     Dosage: UNK, ROUTE: UNKNOWN
  215. DIETARY SUPPLEMENT [Suspect]
     Active Substance: DIETARY SUPPLEMENT
     Dosage: UNK, ROUTE: UNKNOWN
  216. BRINZOLAMIDE\TIMOLOL MALEATE [Suspect]
     Active Substance: BRINZOLAMIDE\TIMOLOL MALEATE
     Indication: Product used for unknown indication
     Dosage: ROUTE: UNK
  217. BRINZOLAMIDE\TIMOLOL MALEATE [Suspect]
     Active Substance: BRINZOLAMIDE\TIMOLOL MALEATE
     Dosage: UNK, ROUTE: OPHTHALMIC
  218. ACETAMINOPHEN\CODEINE PHOSPHATE [Concomitant]
     Active Substance: ACETAMINOPHEN\CODEINE PHOSPHATE
     Indication: Product used for unknown indication
     Dosage: UNK, ROUTE: UNKNOWN
  219. Paracetamol; Pseudoephedrine hydrochloride [Concomitant]
     Indication: Product used for unknown indication
  220. PYRIDOXINE HYDROCHLORIDE [Concomitant]
     Active Substance: PYRIDOXINE HYDROCHLORIDE
     Indication: Product used for unknown indication
  221. PREGABALIN [Suspect]
     Active Substance: PREGABALIN
     Indication: Arthralgia
  222. ESTRADIOL [Suspect]
     Active Substance: ESTRADIOL
     Indication: Menopausal symptoms
     Dosage: UNK, ROUTE: UNKNOWN
  223. ESTRADIOL [Suspect]
     Active Substance: ESTRADIOL
     Indication: Arthralgia
     Dosage: UNK, ROUTE: UNKNOWN
  224. ESTRADIOL [Suspect]
     Active Substance: ESTRADIOL
     Dosage: UNK, ROUTE: UNKNOWN

REACTIONS (8)
  - Toxic epidermal necrolysis [Recovered/Resolved]
  - Epidermal necrosis [Recovered/Resolved]
  - Rash papular [Recovered/Resolved]
  - Rash erythematous [Recovered/Resolved]
  - Haemoglobin decreased [Recovered/Resolved]
  - Product use in unapproved indication [Recovered/Resolved]
  - Off label use [Recovered/Resolved]
  - Nikolsky^s sign test [Recovered/Resolved]
